FAERS Safety Report 14490852 (Version 3)
Quarter: 2018Q1

REPORT INFORMATION
  Report Type: Report from Study
  Country: CN (occurrence: CN)
  Receive Date: 20180206
  Receipt Date: 20180314
  Transmission Date: 20180509
  Serious: Yes (Hospitalization)
  Sender: FDA-Public Use
  Company Number: CN-ROCHE-2046226

PATIENT
  Age: 63 Year
  Sex: Male
  Weight: 52 kg

DRUGS (17)
  1. BIAXIN [Concomitant]
     Active Substance: CLARITHROMYCIN
     Indication: PRODUCTIVE COUGH
     Route: 065
     Dates: start: 20171121, end: 20171128
  2. EUCALYPTUS LEMON PINENE ENTERIC SOFT CAPSULE [Concomitant]
     Route: 065
     Dates: start: 20180118, end: 20180124
  3. LEVOFLOXACIN. [Concomitant]
     Active Substance: LEVOFLOXACIN
     Indication: PRODUCTIVE COUGH
     Route: 065
     Dates: start: 20171225
  4. THEOPHYLLINE, SUSTAINED RELEASE [Concomitant]
     Indication: TRACHEOBRONCHITIS
     Route: 065
     Dates: start: 20180118, end: 20180130
  5. CEFETAMET PIVOXIL HYDROCHLORIDE [Concomitant]
     Indication: PRODUCTIVE COUGH
     Route: 065
     Dates: start: 20171211, end: 20171220
  6. MEDIUM AND LONG CHAIN FAT EMULSION INJECTION [Concomitant]
     Active Substance: LIPOSYN (R) INTRAVENOUS FAT EMULSION
     Dosage: C8-24VE
     Route: 065
     Dates: start: 20171223, end: 20171226
  7. SALBUTAMOL SULPHATE [Concomitant]
     Active Substance: ALBUTEROL SULFATE
     Indication: BRONCHOSPASM
     Route: 065
     Dates: start: 20161012
  8. HAEMOCOAGULASE AGKISTRODON [Concomitant]
     Indication: HAEMOSTASIS
     Route: 065
     Dates: start: 20171225, end: 20171226
  9. ATEZOLIZUMAB. [Suspect]
     Active Substance: ATEZOLIZUMAB
     Indication: NON-SMALL CELL LUNG CANCER
     Dosage: ON 11/DEC/2017, THE PATIENT RECEIVED MOST RECENT DOSE OF ATEZOLIZUMAB AT 1200 MG.??ON 26/JAN/2018, T
     Route: 042
     Dates: start: 20160921
  10. ACETYLCYSTEINE. [Concomitant]
     Active Substance: ACETYLCYSTEINE
     Indication: PRODUCTIVE COUGH
     Route: 065
     Dates: start: 20170612
  11. EUCALYPTUS LEMON PINENE ENTERIC SOFT CAPSULE [Concomitant]
     Indication: PRODUCTIVE COUGH
     Route: 065
     Dates: start: 20171121, end: 20171128
  12. CLARITHROMYCIN. [Concomitant]
     Active Substance: CLARITHROMYCIN
     Indication: TRACHEOBRONCHITIS
     Route: 065
     Dates: start: 20180118, end: 20180130
  13. EUCALYPTUS LEMON PINENE ENTERIC SOFT CAPSULE [Concomitant]
     Indication: TRACHEOBRONCHITIS
     Route: 065
     Dates: start: 20171225
  14. AMBROXOL HYDROCHLORIDE [Concomitant]
     Active Substance: AMBROXOL HYDROCHLORIDE
     Indication: DYSPNOEA
     Route: 065
     Dates: start: 20160921
  15. THEOPHYLLINE, SUSTAINED RELEASE [Concomitant]
     Indication: DYSPNOEA
     Route: 065
     Dates: start: 20160921
  16. CEFETAMET PIVOXIL HYDROCHLORIDE [Concomitant]
     Route: 065
     Dates: start: 20171225
  17. EUCALYPTUS LEMON PINENE ENTERIC SOFT CAPSULE [Concomitant]
     Route: 065
     Dates: start: 20180103, end: 20180109

REACTIONS (3)
  - Pneumonia [Recovered/Resolved]
  - Lung infection [Not Recovered/Not Resolved]
  - Lung infection [Not Recovered/Not Resolved]

NARRATIVE: CASE EVENT DATE: 20171221
